FAERS Safety Report 10626017 (Version 2)
Quarter: 2014Q4

REPORT INFORMATION
  Report Type: Spontaneous
  Country: BR (occurrence: BR)
  Receive Date: 20141204
  Receipt Date: 20141223
  Transmission Date: 20150529
  Serious: Yes (Hospitalization)
  Sender: FDA-Public Use
  Company Number: BR-PFIZER INC-2014328096

PATIENT
  Age: 63 Year
  Sex: Female
  Weight: 75 kg

DRUGS (12)
  1. VENAFLON [Concomitant]
     Indication: CARDIOVASCULAR DISORDER
     Dosage: 2 DF, DAILY
  2. LOSARTAN [Concomitant]
     Active Substance: LOSARTAN
     Indication: BLOOD PRESSURE ABNORMAL
     Dosage: 2 DF, DAILY
  3. LIPITOR [Suspect]
     Active Substance: ATORVASTATIN CALCIUM
     Indication: BLOOD TRIGLYCERIDES
     Dosage: 40 MG, DAILY
     Route: 048
     Dates: start: 1997
  4. CARVEDILOL. [Concomitant]
     Active Substance: CARVEDILOL
     Indication: CHEST PAIN
     Dosage: 2 DF, DAILY
  5. ALPRAZOLAM. [Concomitant]
     Active Substance: ALPRAZOLAM
     Indication: BLOOD PRESSURE ABNORMAL
     Dosage: 1 DF, DAILY
  6. MELOXICAM. [Concomitant]
     Active Substance: MELOXICAM
     Indication: PAIN
     Dosage: 1 DF, DAILY
  7. CAPTOPRIL. [Concomitant]
     Active Substance: CAPTOPRIL
     Indication: CARDIAC DISORDER
     Dosage: 1 DF, UNK
  8. BETAHISTINE [Concomitant]
     Active Substance: BETAHISTINE
     Indication: LABYRINTHITIS
     Dosage: 2 DF, DAILY
  9. ISOSORBIDE MONONITRATE. [Concomitant]
     Active Substance: ISOSORBIDE MONONITRATE
     Indication: CARDIAC DISORDER
     Dosage: 2 DF, DAILY
  10. DIGOXIN. [Concomitant]
     Active Substance: DIGOXIN
     Indication: CARDIAC DISORDER
     Dosage: 1 DF, DAILY
  11. SPIRONOLACTONE. [Concomitant]
     Active Substance: SPIRONOLACTONE
     Indication: CARDIAC DISORDER
     Dosage: 2 DF, DAILY
  12. BURINAX [Concomitant]
     Active Substance: BUMETANIDE
     Indication: URINARY TRACT DISORDER
     Dosage: 1 DF, DAILY

REACTIONS (1)
  - Breast cancer female [Unknown]

NARRATIVE: CASE EVENT DATE: 2002
